FAERS Safety Report 9387930 (Version 1)
Quarter: 2013Q3

REPORT INFORMATION
  Report Type: Spontaneous
  Country: FR (occurrence: FR)
  Receive Date: 20130708
  Receipt Date: 20130708
  Transmission Date: 20140515
  Serious: Yes (Other)
  Sender: FDA-Public Use
  Company Number: PHHY2013FR053604

PATIENT
  Sex: Female

DRUGS (5)
  1. RASILEZ [Suspect]
     Indication: HYPERTENSION
     Dosage: 150 MG, QD
     Route: 048
     Dates: start: 20130406
  2. LERCAN [Concomitant]
     Indication: HYPERTENSION
     Dosage: 10 MG, UNK
     Route: 048
  3. HYDREA [Concomitant]
     Indication: PLATELET COUNT INCREASED
     Dosage: UNK UKN, QW3
     Route: 048
     Dates: start: 20130311, end: 20130530
  4. HYDREA [Concomitant]
     Dosage: UKN, QD
     Route: 048
     Dates: start: 20130530
  5. KARDEGIC [Concomitant]
     Dosage: UNK UKN, UNK

REACTIONS (2)
  - Deafness transitory [Recovering/Resolving]
  - Chest discomfort [Recovered/Resolved]
